FAERS Safety Report 10645582 (Version 1)
Quarter: 2014Q4

REPORT INFORMATION
  Report Type: Spontaneous
  Country: FR (occurrence: FR)
  Receive Date: 20141211
  Receipt Date: 20141211
  Transmission Date: 20150529
  Serious: Yes (Other)
  Sender: FDA-Public Use
  Company Number: FR-BAYER-2014-180088

PATIENT
  Age: 41 Year
  Sex: Female

DRUGS (4)
  1. PYOSTACINE [Suspect]
     Active Substance: PRISTINAMYCIN
     Dosage: UNK
     Route: 048
     Dates: end: 201402
  2. ORELOX [Suspect]
     Active Substance: CEFPODOXIME
     Dosage: UNK
     Route: 048
     Dates: start: 201402, end: 201402
  3. PNEUMOREL [Suspect]
     Active Substance: FENSPIRIDE HYDROCHLORIDE
     Dosage: UNK
     Route: 048
     Dates: start: 201402, end: 201402
  4. MIRENA [Suspect]
     Active Substance: LEVONORGESTREL
     Indication: MENORRHAGIA
     Dosage: 20 MCG/24HR, CONT
     Route: 015
     Dates: start: 2012

REACTIONS (1)
  - Urticaria chronic [Not Recovered/Not Resolved]

NARRATIVE: CASE EVENT DATE: 201402
